FAERS Safety Report 22689908 (Version 2)
Quarter: 2025Q1

REPORT INFORMATION
  Report Type: Spontaneous
  Country: US (occurrence: US)
  Receive Date: 20230711
  Receipt Date: 20250114
  Transmission Date: 20250409
  Serious: No
  Sender: CHATTEM
  Company Number: US-OPELLA-2023OHG000002

PATIENT
  Sex: Female

DRUGS (1)
  1. DULCOLAX (BISACODYL) [Suspect]
     Active Substance: BISACODYL
     Indication: Product used for unknown indication
     Route: 048

REACTIONS (2)
  - Incorrect route of product administration [Unknown]
  - No adverse event [Unknown]
